FAERS Safety Report 6711906-2 (Version None)
Quarter: 2010Q2

REPORT INFORMATION
  Report Type: 
  Country: None (occurrence: None)
  Receive Date: 20100505
  Receipt Date: 20100426
  Transmission Date: 20101027
  Serious: Yes (Death, Life-Threatening, Hospitalization)
  Sender: FDA-Public Use
  Company Number: JP-MERCK-1004USA02512

PATIENT
  Age: 83 Year
  Sex: Male

DRUGS (12)
  1. JANUVIA [Suspect]
     Indication: DIABETES MELLITUS
     Route: 048
     Dates: start: 20100209
  2. ARICEPT [Concomitant]
     Indication: DEMENTIA
     Route: 048
     Dates: start: 20090519
  3. REQUIP [Concomitant]
     Indication: PARKINSON'S DISEASE
     Route: 048
     Dates: start: 20090519
  4. LAC-B [Concomitant]
     Dosage: DAILY DOSE UNKNOWN
     Route: 048
  5. CEREKINON [Concomitant]
     Dosage: DAILY DOSE UNKNOWN
     Route: 048
  6. ASPIRIN [Concomitant]
     Indication: ANGINA PECTORIS
     Route: 048
     Dates: start: 20030912
  7. NIKORANMART [Concomitant]
     Indication: ANGINA PECTORIS
     Route: 048
     Dates: start: 20030912
  8. FLUVASTATIN [Concomitant]
     Indication: DYSLIPIDAEMIA
     Route: 048
     Dates: start: 20030912
  9. CORINAEL L [Concomitant]
     Indication: HYPERTENSION
     Route: 048
     Dates: start: 20030912
  10. COZAAR [Concomitant]
     Indication: HYPERTENSION
     Route: 048
     Dates: start: 20030912
  11. LASIX [Concomitant]
     Indication: CARDIAC FAILURE
     Route: 048
     Dates: start: 20030912
  12. ARGAMATE JELLY [Concomitant]
     Indication: RENAL FAILURE CHRONIC
     Route: 048
     Dates: start: 20030912

REACTIONS (3)
  - ACUTE RESPIRATORY DISTRESS SYNDROME [None]
  - MULTI-ORGAN FAILURE [None]
  - PNEUMONIA [None]
